FAERS Safety Report 9444150 (Version 1)
Quarter: 2013Q3

REPORT INFORMATION
  Report Type: Spontaneous
  Country: US (occurrence: None)
  Receive Date: 20130806
  Receipt Date: 20130806
  Transmission Date: 20140515
  Serious: Yes (Disabling)
  Sender: FDA-Public Use
  Company Number: None

PATIENT
  Age: 63 Year
  Sex: Female
  Weight: 50.8 kg

DRUGS (3)
  1. SERTRALINE HCL [Suspect]
     Indication: ANXIETY
     Dosage: 2 MG, OR LESS NIGHTLY ORAL
     Route: 048
     Dates: start: 20110813, end: 20121010
  2. ATIVAN [Concomitant]
  3. DOXEPIN [Concomitant]

REACTIONS (24)
  - Neuropathy peripheral [None]
  - Oedema [None]
  - Vertigo [None]
  - Bladder pain [None]
  - Sedation [None]
  - Dry mouth [None]
  - Dizziness [None]
  - Suicidal ideation [None]
  - Dry eye [None]
  - Muscle spasms [None]
  - Dyspepsia [None]
  - Nausea [None]
  - Feeling of despair [None]
  - Agitation [None]
  - Arthralgia [None]
  - Erythema [None]
  - Swelling [None]
  - Osteoarthritis [None]
  - Exostosis [None]
  - Abdominal distension [None]
  - Panic attack [None]
  - Paranoia [None]
  - Nightmare [None]
  - Muscular weakness [None]
